FAERS Safety Report 8243845 (Version 6)
Quarter: 2012Q4

REPORT INFORMATION
  Report Type: Report from Study
  Country: KR (occurrence: KR)
  Receive Date: 20111114
  Receipt Date: 20121116
  Transmission Date: 20130627
  Serious: Yes (Death, Hospitalization)
  Sender: FDA-Public Use
  Company Number: KR-BRISTOL-MYERS SQUIBB COMPANY-16202384

PATIENT
  Age: 67 Year
  Sex: Female
  Weight: 47 kg

DRUGS (31)
  1. PACLITAXEL [Suspect]
     Indication: GASTRIC CANCER
     Dosage: prior to event: 16Sep11.
     Route: 042
     Dates: start: 20110803, end: 20110916
  2. MEGESTROL [Concomitant]
     Dates: start: 20110907
  3. DOMPERIDONE [Concomitant]
     Dates: start: 20110907, end: 20110930
  4. ACETYLCYSTEINE [Concomitant]
     Dates: start: 20110907, end: 20110919
  5. BARIUM SULFATE [Concomitant]
     Dates: start: 2011, end: 20110927
  6. HYDROCHLOROTHIAZIDE [Concomitant]
     Dates: start: 2011, end: 20111004
  7. ATENOLOL [Concomitant]
     Dates: start: 2011, end: 20111004
  8. TAMSULOSIN [Concomitant]
     Dates: start: 20110831, end: 20110930
  9. PREDNISOLONE [Concomitant]
     Dates: start: 20110927, end: 20111008
  10. SEPTRIN [Concomitant]
     Dates: start: 20110927, end: 20111008
  11. QUETIAPINE FUMARATE [Concomitant]
     Dates: start: 20110927, end: 20110927
  12. PETHIDINE [Concomitant]
     Dates: start: 20110928, end: 20110928
  13. ATROPINE [Concomitant]
     Dates: start: 20110928, end: 20110928
  14. RANITIDINE [Concomitant]
     Dates: start: 20110928, end: 20110928
  15. MOXIFLOXACIN [Concomitant]
     Dates: start: 20110928, end: 20110928
  16. AMINOPHYLLINE [Concomitant]
     Dates: start: 20110928, end: 20110930
  17. BETHANECHOL CHLORIDE [Concomitant]
     Dates: start: 20110928, end: 20110930
  18. SALBUTAMOL SULFATE [Concomitant]
  19. IPRATROPIUM BROMIDE [Concomitant]
  20. ROCURONIUM BROMIDE [Concomitant]
     Dates: start: 20110930, end: 20110930
  21. MIDAZOLAM [Concomitant]
     Dates: start: 20110930, end: 20110930
  22. TAZOBACTAM SODIUM [Concomitant]
     Dates: start: 20110930, end: 20111013
  23. VANCOMYCIN [Concomitant]
     Dates: start: 20110930, end: 20111013
  24. VECURONIUM BROMIDE [Concomitant]
     Dates: start: 20110930, end: 20111004
  25. ACETAMINOPHEN [Concomitant]
     Dates: start: 20110930, end: 20110930
  26. SODIUM CHLORIDE [Concomitant]
     Dates: start: 20111001, end: 20111003
  27. FUROSEMIDE [Concomitant]
  28. NICARDIPINE [Concomitant]
     Dates: start: 20111001, end: 20111004
  29. INSULIN ASPART [Concomitant]
     Dates: start: 20111004, end: 20111017
  30. DOPAMINE [Concomitant]
     Dates: start: 20111010, end: 20111010
  31. DEXTROSE [Concomitant]

REACTIONS (2)
  - Multi-organ failure [Fatal]
  - Pneumonitis [Unknown]
